FAERS Safety Report 24056283 (Version 3)
Quarter: 2024Q3

REPORT INFORMATION
  Report Type: Spontaneous
  Country: FR (occurrence: FR)
  Receive Date: 20240705
  Receipt Date: 20240724
  Transmission Date: 20241017
  Serious: Yes (Death, Other)
  Sender: OTSUKA
  Company Number: None

PATIENT
  Age: 54 Year
  Sex: Male
  Weight: 80 kg

DRUGS (18)
  1. ARIPIPRAZOLE [Interacting]
     Active Substance: ARIPIPRAZOLE
     Indication: Schizophrenia
     Dosage: 400 MG EVERY 4 WEEK
     Route: 030
     Dates: end: 20240510
  2. LORMETAZEPAM [Interacting]
     Active Substance: LORMETAZEPAM
     Indication: Anxiety
     Dosage: 2 MG, QD
     Route: 048
     Dates: start: 20240516, end: 20240516
  3. ZOPICLONE [Interacting]
     Active Substance: ZOPICLONE
     Indication: Anxiety
     Dosage: 7.5 MG, QD
     Route: 048
     Dates: start: 20240508, end: 20240515
  4. OLANZAPINE [Interacting]
     Active Substance: OLANZAPINE
     Indication: Schizophrenia
     Dosage: 20 MG, QD
     Route: 048
     Dates: end: 20240505
  5. OLANZAPINE [Interacting]
     Active Substance: OLANZAPINE
     Dosage: 27.5 MG, QD
     Route: 048
     Dates: start: 20240507, end: 20240517
  6. DIAZEPAM [Interacting]
     Active Substance: DIAZEPAM
     Indication: Anxiety
     Dosage: 30 MG, QD
     Route: 048
     Dates: end: 20240517
  7. LOXAPINE HYDROCHLORIDE [Interacting]
     Active Substance: LOXAPINE HYDROCHLORIDE
     Indication: Schizophrenia
     Dosage: 125 MG, QD
     Route: 048
     Dates: start: 20240228, end: 20240306
  8. LOXAPINE HYDROCHLORIDE [Interacting]
     Active Substance: LOXAPINE HYDROCHLORIDE
     Dosage: 250 MG, QD
     Route: 048
     Dates: start: 20240510, end: 20240517
  9. LOXAPINE HYDROCHLORIDE [Interacting]
     Active Substance: LOXAPINE HYDROCHLORIDE
     Dosage: 150 MG, QD
     Route: 048
     Dates: start: 20240315, end: 20240319
  10. LOXAPINE HYDROCHLORIDE [Interacting]
     Active Substance: LOXAPINE HYDROCHLORIDE
     Dosage: 75 MG, QD
     Route: 048
     Dates: start: 20240114, end: 20240228
  11. LOXAPINE HYDROCHLORIDE [Interacting]
     Active Substance: LOXAPINE HYDROCHLORIDE
     Dosage: 175 MG, QD
     Route: 048
     Dates: start: 20240306, end: 20240315
  12. LOXAPINE HYDROCHLORIDE [Interacting]
     Active Substance: LOXAPINE HYDROCHLORIDE
     Dosage: 275 MG, QD
     Route: 048
     Dates: start: 20240506, end: 20240510
  13. LOXAPINE HYDROCHLORIDE [Interacting]
     Active Substance: LOXAPINE HYDROCHLORIDE
     Dosage: 225 MG, QD
     Route: 048
     Dates: start: 20240319, end: 20240504
  14. LOXAPINE HYDROCHLORIDE [Interacting]
     Active Substance: LOXAPINE HYDROCHLORIDE
     Dosage: 325 MG, QD
     Route: 048
     Dates: start: 20240504, end: 20240506
  15. TRIMEBUTINE [Concomitant]
     Active Substance: TRIMEBUTINE
     Indication: Product used for unknown indication
     Dosage: 100 MG, QD
     Route: 048
     Dates: start: 202401, end: 20240517
  16. NICOPATCH [Concomitant]
     Active Substance: NICOTINE
     Indication: Product used for unknown indication
     Dosage: 21 MG, QD
     Route: 003
     Dates: start: 202401, end: 20240517
  17. TROPATEPINE HYDROCHLORIDE [Concomitant]
     Active Substance: TROPATEPINE HYDROCHLORIDE
     Indication: Product used for unknown indication
     Dosage: 20 MG, QD
     Route: 048
     Dates: end: 20240517
  18. TAMSULOSIN [Concomitant]
     Active Substance: TAMSULOSIN
     Indication: Product used for unknown indication
     Dosage: 0.4 MG, QD
     Route: 048
     Dates: start: 20240312, end: 20240517

REACTIONS (2)
  - Choking [Fatal]
  - Drug interaction [Fatal]

NARRATIVE: CASE EVENT DATE: 20240101
